FAERS Safety Report 7414784-1 (Version None)
Quarter: 2011Q1

REPORT INFORMATION
  Report Type: 
  Country: None (occurrence: None)
  Receive Date: 20110301
  Receipt Date: 20100216
  Transmission Date: 20110831
  Serious: Yes (Other)
  Sender: FDA-Public Use
  Company Number: US-JNJFOC-20091105904

PATIENT
  Age: 67 Year
  Sex: Female
  Weight: 60.782 kg

DRUGS (3)
  1. MOTRIN [Suspect]
     Indication: MUSCLE RUPTURE
     Dosage: 600 MG, 3 IN 1 DAY, ORAL
     Route: 048
     Dates: start: 20091101, end: 20091101
  2. ACETAMINOPHEN [Concomitant]
  3. DIOVAN [Concomitant]

REACTIONS (2)
  - ERYTHEMA MULTIFORME [None]
  - ALOPECIA [None]
